FAERS Safety Report 8117637-9 (Version None)
Quarter: 2012Q1

REPORT INFORMATION
  Report Type: 
  Country: None (occurrence: None)
  Receive Date: 20120207
  Receipt Date: 20120202
  Transmission Date: 20120608
  Serious: Yes (Other)
  Sender: FDA-Public Use
  Company Number: BR-ACCORD-012256

PATIENT
  Age: 59 Year
  Sex: Female
  Weight: 46 kg

DRUGS (2)
  1. PACLITAXEL [Suspect]
     Dosage: 246.75 MG ON DAY 1
     Route: 042
  2. CARBOPLATIN [Concomitant]
     Indication: CHEMOTHERAPY
     Dosage: 464.53 MG DAILY
     Route: 042
     Dates: end: 20120111

REACTIONS (3)
  - DYSPHAGIA [None]
  - DYSPNOEA [None]
  - MALAISE [None]
